FAERS Safety Report 8444027-1 (Version None)
Quarter: 2012Q2

REPORT INFORMATION
  Report Type: 
  Country: None (occurrence: None)
  Receive Date: 20120618
  Receipt Date: 20120612
  Transmission Date: 20120825
  Serious: Yes (Hospitalization, Other)
  Sender: FDA-Public Use
  Company Number: PHFR2011IE06089

PATIENT
  Sex: Female

DRUGS (13)
  1. GALFER [Concomitant]
  2. CLOZARIL [Suspect]
     Dosage: 350 MG, UNK
     Dates: start: 20101005
  3. CIPROFLOXACIN [Concomitant]
  4. NICOTINE [Concomitant]
  5. CLOZARIL [Suspect]
     Dosage: 250 MG, UNK
     Dates: start: 20120220
  6. ESOMEPRAZOLE [Concomitant]
  7. PROCYCLIDINE HYDROCHLORIDE 2MG TAB [Concomitant]
  8. NICORETTE [Concomitant]
  9. CLOZARIL [Suspect]
     Indication: SCHIZOPHRENIA
     Dosage: 200 MG IN NIGHT AND 100 IN MORNING
     Route: 048
     Dates: start: 20040114
  10. TRAMADOL HCL [Concomitant]
  11. PAROXETINE HCL [Concomitant]
  12. CLOZARIL [Suspect]
     Dosage: 275 MG, UNK
     Dates: start: 20100906
  13. FLUTICASONE PROPIONATE/SALMETEROL [Concomitant]

REACTIONS (10)
  - HAEMATOMA [None]
  - BLADDER TRANSITIONAL CELL CARCINOMA [None]
  - METAMYELOCYTE COUNT INCREASED [None]
  - WHITE BLOOD CELL COUNT INCREASED [None]
  - HAEMOGLOBIN DECREASED [None]
  - LUNG NEOPLASM MALIGNANT [None]
  - HAEMOPTYSIS [None]
  - POIKILOCYTOSIS [None]
  - NEUTROPHIL COUNT INCREASED [None]
  - PLATELET COUNT INCREASED [None]
